FAERS Safety Report 9136316 (Version 1)
Quarter: 2013Q1

REPORT INFORMATION
  Report Type: Spontaneous
  Country: US (occurrence: US)
  Receive Date: 20130304
  Receipt Date: 20130304
  Transmission Date: 20140127
  Serious: No
  Sender: FDA-Public Use
  Company Number: US-ABBOTT-12P-163-0927942-00

PATIENT
  Sex: Male
  Weight: 102.15 kg

DRUGS (2)
  1. ANDROGEL 1% [Suspect]
     Indication: BLOOD TESTOSTERONE DECREASED
     Dosage: 2.5 GRAMS DAILY, PACKETS
  2. ANDROGEL 1% [Suspect]
     Dosage: 5 GRAMS DAILY, PACKETS
     Dates: start: 2012

REACTIONS (10)
  - Medication error [Unknown]
  - Drug administered at inappropriate site [Unknown]
  - Thymus enlargement [Unknown]
  - Arthropathy [Not Recovered/Not Resolved]
  - Unevaluable event [Not Recovered/Not Resolved]
  - Arthropathy [Not Recovered/Not Resolved]
  - Arthralgia [Not Recovered/Not Resolved]
  - Pain [Not Recovered/Not Resolved]
  - Musculoskeletal pain [Not Recovered/Not Resolved]
  - Rotator cuff syndrome [Not Recovered/Not Resolved]
